FAERS Safety Report 19900660 (Version 1)
Quarter: 2021Q3

REPORT INFORMATION
  Report Type: Spontaneous
  Country: US (occurrence: US)
  Receive Date: 20210929
  Receipt Date: 20210929
  Transmission Date: 20211014
  Serious: Yes (Hospitalization)
  Sender: FDA-Public Use
  Company Number: US-FRESENIUS MEDICAL CARE RENAL THERAPIES GROUP-FMC-2108-001238

PATIENT
  Age: 70 Year
  Sex: Male
  Weight: 105 kg

DRUGS (1)
  1. DELFLEX WITH DEXTROSE 2.5% LOW MAGNESIUM LOW CALCIUM [Suspect]
     Active Substance: CALCIUM CHLORIDE\DEXTROSE\MAGNESIUM CHLORIDE\SODIUM CHLORIDE\SODIUM LACTATE
     Indication: END STAGE RENAL DISEASE
     Dosage: THE PATIENT^S PD PRESCRIPTION IS 3 EXCHANGES WITH A FILL VOLUME OF 3,000ML AND A DWELL OF 2.5 HOURS.
     Route: 033

REACTIONS (1)
  - Peritonitis bacterial [Recovering/Resolving]
